FAERS Safety Report 7908385 (Version 3)
Quarter: 2012Q4

REPORT INFORMATION
  Report Type: Spontaneous
  Country: GB (occurrence: None)
  Receive Date: 20110330
  Receipt Date: 20120816
  Transmission Date: 20130627
  Serious: Yes (Other)
  Sender: FDA-Public Use
  Company Number: 2011AP000479

PATIENT
  Age: 79 Year
  Sex: Male

DRUGS (15)
  1. LEFLUNOMIDE [Suspect]
     Indication: RHEUMATOID ARTHRITIS
     Dosage: 20 MG;PO
     Route: 048
     Dates: start: 201012
  2. NIFEDIPINE [Concomitant]
  3. CALCIUM CARBONATE [Concomitant]
  4. COLECALCIFEROL (COLECALCIFEROL) [Concomitant]
  5. ALENDRONATE SODIUM [Concomitant]
  6. FINASTERIDE [Concomitant]
  7. GLICLAZIDE (GLICLAZIDE) [Concomitant]
  8. LACTULOSE [Concomitant]
  9. METFORMIN (METFORMIN) [Concomitant]
  10. OMEPRAZOLE [Concomitant]
  11. ACETAMINOPHEN [Concomitant]
  12. PERINDOPRIL (PERINDOPRIL) [Concomitant]
  13. PREDNISOLONE [Concomitant]
  14. SIMVASTATIN [Concomitant]
  15. TAMSULOSIN HYDROCHLORIDE [Concomitant]

REACTIONS (4)
  - DIABETIC FOOT [None]
  - SKIN DISORDER [None]
  - SKIN ULCER [None]
  - VASCULITIC RASH [None]
